FAERS Safety Report 26037141 (Version 1)
Quarter: 2025Q4

REPORT INFORMATION
  Report Type: Spontaneous
  Country: CO (occurrence: CO)
  Receive Date: 20251112
  Receipt Date: 20251112
  Transmission Date: 20260118
  Serious: Yes (Other)
  Sender: BIOMARIN
  Company Number: CO-BIOMARINAP-CO-2025-169939

PATIENT
  Sex: Female
  Weight: 15.5 kg

DRUGS (1)
  1. BRINEURA [Suspect]
     Active Substance: CERLIPONASE ALFA
     Indication: Neuronal ceroid lipofuscinosis
     Dosage: 300 MILLIGRAM, QOW
     Dates: start: 20250812

REACTIONS (3)
  - General physical health deterioration [Unknown]
  - Gait inability [Unknown]
  - Speech disorder [Unknown]
